FAERS Safety Report 24794913 (Version 1)
Quarter: 2024Q4

REPORT INFORMATION
  Report Type: Spontaneous
  Country: US (occurrence: US)
  Receive Date: 20241231
  Receipt Date: 20241231
  Transmission Date: 20250114
  Serious: No
  Sender: PFIZER
  Company Number: US-PFIZER INC-202400333302

PATIENT
  Age: 60 Year
  Sex: Female

DRUGS (1)
  1. XELJANZ XR [Suspect]
     Active Substance: TOFACITINIB CITRATE
     Indication: Rheumatoid arthritis
     Dosage: 11 MG, 1X/DAY
     Route: 048

REACTIONS (7)
  - Pain in jaw [Unknown]
  - Back pain [Unknown]
  - Dyspnoea [Not Recovered/Not Resolved]
  - Hypertension [Unknown]
  - Finger deformity [Unknown]
  - Musculoskeletal discomfort [Unknown]
  - Joint effusion [Unknown]

NARRATIVE: CASE EVENT DATE: 20241223
